FAERS Safety Report 7543975-4 (Version None)
Quarter: 2011Q2

REPORT INFORMATION
  Report Type: 
  Country: None (occurrence: None)
  Receive Date: 20110613
  Receipt Date: 20050321
  Transmission Date: 20111010
  Serious: Yes (Hospitalization, Other)
  Sender: FDA-Public Use
  Company Number: PHFR2005GB00630

PATIENT
  Sex: Male

DRUGS (2)
  1. CLOZAPINE [Suspect]
     Indication: SCHIZOPHRENIA
     Dosage: 300 MG, DAILY
     Route: 048
     Dates: start: 20030415
  2. CLOZAPINE [Suspect]
     Dosage: 525 MG, DAILY
     Route: 048
     Dates: start: 20030429

REACTIONS (2)
  - APPENDICITIS [None]
  - ABDOMINAL PAIN UPPER [None]
